FAERS Safety Report 5578365-7 (Version None)
Quarter: 2007Q4

REPORT INFORMATION
  Report Type: 
  Country: None (occurrence: None)
  Receive Date: 20071231
  Receipt Date: 20071219
  Transmission Date: 20080405
  Serious: Yes (Death)
  Sender: FDA-Public Use
  Company Number: PT-GENENTECH-248732

PATIENT
  Age: 46 Year
  Sex: Male

DRUGS (1)
  1. MABTHERA [Suspect]
     Indication: NON-HODGKIN'S LYMPHOMA

REACTIONS (10)
  - ANGIOGRAM ABNORMAL [None]
  - ATAXIA [None]
  - BLOOD DISORDER [None]
  - DEMENTIA [None]
  - DYSARTHRIA [None]
  - ELECTROENCEPHALOGRAM ABNORMAL [None]
  - ENCEPHALITIS [None]
  - MONOPARESIS [None]
  - THROMBOCYTOPENIA [None]
  - VIRAL INFECTION [None]
